FAERS Safety Report 5225319-6 (Version None)
Quarter: 2007Q1

REPORT INFORMATION
  Report Type: 
  Country: None (occurrence: None)
  Receive Date: 20070131
  Receipt Date: 20070123
  Transmission Date: 20070707
  Serious: Yes (Hospitalization)
  Sender: FDA-Public Use
  Company Number: JP-AVENTIS-200710637GDDC

PATIENT
  Age: 67 Year
  Sex: Female

DRUGS (4)
  1. RIFADIN [Suspect]
     Indication: PULMONARY TUBERCULOSIS
     Dosage: DOSE: UNK
     Route: 048
     Dates: start: 20060831, end: 20060913
  2. ISCOTIN [Suspect]
     Indication: TUBERCULOSIS
     Dosage: DOSE: UNK
     Route: 048
     Dates: start: 20060831, end: 20060913
  3. PYRAZINAMIDE [Concomitant]
     Route: 048
     Dates: start: 20030110, end: 20030120
  4. PYRAZINAMIDE [Concomitant]
     Route: 048
     Dates: start: 20030201

REACTIONS (1)
  - PNEUMONIA [None]
